FAERS Safety Report 20817124 (Version 1)
Quarter: 2022Q2

REPORT INFORMATION
  Report Type: Spontaneous
  Country: TN (occurrence: TN)
  Receive Date: 20220512
  Receipt Date: 20220512
  Transmission Date: 20220720
  Serious: Yes (Other)
  Sender: FDA-Public Use
  Company Number: TN-NAARI PTE LIMITED-2022NP000029

PATIENT
  Age: 49 Year
  Sex: Female

DRUGS (1)
  1. NORETHINDRONE [Suspect]
     Active Substance: NORETHINDRONE
     Indication: Product used for unknown indication
     Dosage: UNK, PROGESTIN-ONLY PILLS
     Route: 065

REACTIONS (1)
  - Cholestasis [Recovered/Resolved]
